FAERS Safety Report 16290220 (Version 1)
Quarter: 2019Q2

REPORT INFORMATION
  Report Type: Spontaneous
  Country: US (occurrence: US)
  Receive Date: 20190508
  Receipt Date: 20190508
  Transmission Date: 20190711
  Serious: No
  Sender: FDA-Public Use
  Company Number: None

PATIENT
  Age: 62 Year
  Sex: Female
  Weight: 59.4 kg

DRUGS (10)
  1. LORAZEPAM. [Suspect]
     Active Substance: LORAZEPAM
     Indication: INSOMNIA
     Dosage: ?          QUANTITY:1 TABLET(S);?
     Route: 048
  2. ASPIRIN. [Concomitant]
     Active Substance: ASPIRIN
  3. N-ACETALCYSTINE [Concomitant]
  4. VENTOLIN [Concomitant]
     Active Substance: ALBUTEROL SULFATE
  5. TRAMADOL PM [Concomitant]
  6. BIOTIN [Concomitant]
     Active Substance: BIOTIN
  7. QVAR [Concomitant]
     Active Substance: BECLOMETHASONE DIPROPIONATE
  8. TUMERIC [Concomitant]
     Active Substance: HERBALS\TURMERIC
  9. THYROID [Concomitant]
     Active Substance: LEVOTHYROXINE\LIOTHYRONINE
  10. TYLENOL MULTIVITAMIN [Concomitant]

REACTIONS (3)
  - Insomnia [None]
  - Abnormal dreams [None]
  - Drug ineffective [None]

NARRATIVE: CASE EVENT DATE: 20190201
